FAERS Safety Report 21466159 (Version 1)
Quarter: 2022Q4

REPORT INFORMATION
  Report Type: Spontaneous
  Country: US (occurrence: None)
  Receive Date: 20221016
  Receipt Date: 20221016
  Transmission Date: 20230113
  Serious: No
  Sender: FDA-Public Use
  Company Number: None

PATIENT
  Age: 47 Year
  Sex: Female
  Weight: 103.5 kg

DRUGS (20)
  1. GABAPENTIN [Suspect]
     Active Substance: GABAPENTIN
     Indication: Sciatica
     Dosage: OTHER QUANTITY : 90 CAPSULE(S);?FREQUENCY : 3 TIMES A DAY;?
     Route: 048
     Dates: start: 20220831, end: 20221010
  2. GABAPENTIN [Suspect]
     Active Substance: GABAPENTIN
     Indication: Back pain
  3. GABAPENTIN [Suspect]
     Active Substance: GABAPENTIN
     Indication: Pain in extremity
  4. BUPROPION [Concomitant]
     Active Substance: BUPROPION
  5. TRINTELLIX [Concomitant]
     Active Substance: VORTIOXETINE HYDROBROMIDE
  6. BUSPIRONE [Concomitant]
     Active Substance: BUSPIRONE HYDROCHLORIDE
  7. Esomeprazzole [Concomitant]
  8. MONTELUKAST [Concomitant]
     Active Substance: MONTELUKAST SODIUM
  9. LEVONORGESTREL [Concomitant]
     Active Substance: LEVONORGESTREL
  10. ATENOLOL [Concomitant]
     Active Substance: ATENOLOL
  11. BENZONATATE [Concomitant]
     Active Substance: BENZONATATE
  12. PROMETHAZINE [Concomitant]
     Active Substance: PROMETHAZINE HYDROCHLORIDE
  13. CYCLOBENZAPRINE [Concomitant]
     Active Substance: CYCLOBENZAPRINE
  14. CLONAZEPAM [Concomitant]
     Active Substance: CLONAZEPAM
  15. IBUPROFEN [Concomitant]
     Active Substance: IBUPROFEN
  16. VITAMIN D [Concomitant]
     Active Substance: VITAMIN D NOS
  17. VITAMIN B12 [Concomitant]
     Active Substance: CYANOCOBALAMIN
  18. Women^s multivitamin [Concomitant]
  19. CALCIUM [Concomitant]
     Active Substance: CALCIUM
  20. CETIRIZINE HYDROCHLORIDE [Concomitant]

REACTIONS (4)
  - Depression [None]
  - Anxiety disorder [None]
  - Suicidal ideation [None]
  - Irritability [None]

NARRATIVE: CASE EVENT DATE: 20220801
